FAERS Safety Report 8921640 (Version 2)
Quarter: 2013Q1

REPORT INFORMATION
  Report Type: Spontaneous
  Country: US (occurrence: US)
  Receive Date: 20121121
  Receipt Date: 20130111
  Transmission Date: 20140127
  Serious: No
  Sender: FDA-Public Use
  Company Number: US-009507513-1211USA007343

PATIENT
  Age: 53 None
  Sex: Female

DRUGS (4)
  1. PEGINTRON [Suspect]
     Dosage: 120 MICROGRAM, QW
     Route: 058
     Dates: start: 20120916
  2. RIBASPHERE [Suspect]
  3. TELAPREVIR [Suspect]
  4. PROTONIX [Concomitant]

REACTIONS (9)
  - Asthma [Recovering/Resolving]
  - Rash [Unknown]
  - Alopecia [Unknown]
  - Weight decreased [Unknown]
  - Nausea [Not Recovered/Not Resolved]
  - Dysgeusia [Not Recovered/Not Resolved]
  - Pruritus [Not Recovered/Not Resolved]
  - Insomnia [Not Recovered/Not Resolved]
  - Vertigo [Not Recovered/Not Resolved]
